FAERS Safety Report 4432934-6 (Version None)
Quarter: 2004Q3

REPORT INFORMATION
  Report Type: 
  Country: None (occurrence: None)
  Receive Date: 20040726
  Receipt Date: 20040402
  Transmission Date: 20050211
  Serious: No
  Sender: FDA-Public Use
  Company Number: USA040463912

PATIENT
  Age: 71 Year
  Sex: Female

DRUGS (6)
  1. FORTEO [Suspect]
     Indication: BONE DENSITY DECREASED
     Dosage: 20 UG/ 1 DAY
     Dates: start: 20040303
  2. FORTEO [Suspect]
     Indication: OSTEOPOROSIS
     Dosage: 20 UG/ 1 DAY
     Dates: start: 20040303
  3. HYDROCHLOROTHIAZIDE [Concomitant]
  4. CALCIUM [Concomitant]
  5. ESTROGEN NOS [Concomitant]
  6. PROVERA [Concomitant]

REACTIONS (8)
  - ASTHENIA [None]
  - BLOOD CALCIUM INCREASED [None]
  - BONE PAIN [None]
  - FATIGUE [None]
  - INJECTION SITE ERYTHEMA [None]
  - MAMMOGRAM ABNORMAL [None]
  - OEDEMA PERIPHERAL [None]
  - PAIN [None]
